FAERS Safety Report 5276685-7 (Version None)
Quarter: 2007Q1

REPORT INFORMATION
  Report Type: 
  Country: None (occurrence: None)
  Receive Date: 20070327
  Receipt Date: 20070315
  Transmission Date: 20070707
  Serious: Yes (Hospitalization)
  Sender: FDA-Public Use
  Company Number: PHBS2007IT04726

PATIENT
  Sex: Male

DRUGS (1)
  1. LEPONEX [Suspect]
     Route: 048

REACTIONS (1)
  - HAEMOLYSIS [None]
